FAERS Safety Report 9529028 (Version 1)
Quarter: 2013Q1

REPORT INFORMATION
  Report Type: Spontaneous
  Country: US (occurrence: None)
  Receive Date: 20130329
  Receipt Date: 20130329
  Transmission Date: 20140127
  Serious: No
  Sender: FDA-Public Use
  Company Number: 1000041059

PATIENT
  Age: 26 Year
  Sex: Female

DRUGS (2)
  1. LINZESS [Suspect]
     Indication: CONSTIPATION
     Route: 048
     Dates: start: 20121204
  2. DOMPERIDONE (DOMPERIDONE) (DOMEPERIDONE) [Concomitant]

REACTIONS (3)
  - Abdominal pain [None]
  - Abdominal distension [None]
  - Gastrointestinal motility disorder [None]
